FAERS Safety Report 11852621 (Version 2)
Quarter: 2016Q1

REPORT INFORMATION
  Report Type: Spontaneous
  Country: US (occurrence: US)
  Receive Date: 20151218
  Receipt Date: 20160111
  Transmission Date: 20160526
  Serious: Yes (Other)
  Sender: FDA-Public Use
  Company Number: US-LPDUSPRD-20151033

PATIENT
  Sex: Male

DRUGS (8)
  1. TOPIRAMATE. [Suspect]
     Active Substance: TOPIRAMATE
     Dosage: DOSE UNKNOWN
     Route: 064
  2. PROPOFOL. [Suspect]
     Active Substance: PROPOFOL
     Dosage: DOSE NOT STATED
     Route: 064
  3. METHYLPREDNISOLONE. [Concomitant]
     Active Substance: METHYLPREDNISOLONE
     Dosage: 1 G DAILY
     Route: 064
  4. MIDAZOLAM [Suspect]
     Active Substance: MIDAZOLAM\MIDAZOLAM HYDROCHLORIDE
     Dosage: DOSE UNKNOWN
     Route: 064
  5. PHENYTOIN SODIUM INJECTION (40042-009-02) [Suspect]
     Active Substance: PHENYTOIN SODIUM
     Dosage: DOSE NOT STATED
     Route: 064
  6. LEVETIRACETAM INJECTION (0517-3605-01) [Suspect]
     Active Substance: LEVETIRACETAM
     Dosage: DOSE NOT PROVIDED
     Route: 064
  7. CLOBAZAM [Suspect]
     Active Substance: CLOBAZAM
     Dosage: DOSE UNKNOWN
     Route: 064
  8. IVIG [Concomitant]
     Active Substance: HUMAN IMMUNOGLOBULIN G
     Dosage: 400 MG/KG
     Route: 064

REACTIONS (5)
  - Neuromyopathy [Unknown]
  - Supraventricular tachycardia [Unknown]
  - Foetal exposure during pregnancy [Recovered/Resolved]
  - Respiratory depression [Unknown]
  - Drug withdrawal syndrome neonatal [Unknown]
